FAERS Safety Report 9388928 (Version 2)
Quarter: 2013Q3

REPORT INFORMATION
  Report Type: Report from Study
  Country: US (occurrence: US)
  Receive Date: 20130708
  Receipt Date: 20130807
  Transmission Date: 20140515
  Serious: Yes (Other)
  Sender: FDA-Public Use
  Company Number: US-ABBOTT-13P-163-1113374-00

PATIENT
  Sex: Female

DRUGS (28)
  1. HUMIRA [Suspect]
     Indication: PSORIATIC ARTHROPATHY
  2. FLONASE [Concomitant]
     Indication: HYPERSENSITIVITY
     Dosage: 1 TO 2 SPRAYS, AS NEEDED, EACH NOSTRIL, DAILY
  3. QVAR [Concomitant]
     Indication: ASTHMA
  4. CONCERTA [Concomitant]
     Indication: ATTENTION DEFICIT/HYPERACTIVITY DISORDER
     Dosage: IN THE MORNING, DAILY
  5. OMEPRAZOLE [Concomitant]
     Indication: PRODUCT USED FOR UNKNOWN INDICATION
  6. TOPIRAMATE [Concomitant]
     Indication: MIGRAINE
     Dosage: 400MG IN THE MORNING, 200MG AT NIGHT, DAILY
  7. TOPIRAMATE [Concomitant]
     Indication: EPILEPSY
  8. DILANTIN [Concomitant]
     Indication: EPILEPSY
     Dosage: IN THE MORNING AND EVENING, DAILY
  9. CELEXA [Concomitant]
     Indication: DEPRESSION
     Dosage: IN THE MORNING
  10. CELEXA [Concomitant]
     Indication: ANXIETY
  11. CELEXA [Concomitant]
     Indication: BIPOLAR DISORDER
  12. FOLIC ACID [Concomitant]
     Indication: VITAMIN SUPPLEMENTATION
  13. METHOTREXATE [Concomitant]
     Indication: PSORIASIS
     Dosage: SHOT, WEEKLY
  14. METHOTREXATE [Concomitant]
     Indication: PSORIATIC ARTHROPATHY
  15. MELOXICAM [Concomitant]
     Indication: PSORIATIC ARTHROPATHY
  16. ZYRTEC [Concomitant]
     Indication: HYPERSENSITIVITY
  17. ZYRTEC [Concomitant]
     Indication: ASTHMA
  18. VERAPAMIL [Concomitant]
     Indication: MIGRAINE
  19. VERAPAMIL [Concomitant]
     Indication: EPILEPSY
  20. ALBUTEROL [Concomitant]
     Indication: ASTHMA
     Dosage: INHALER, AS NEEDED
  21. SUMATRIPTAN SUCCINATE [Concomitant]
     Indication: MIGRAINE
  22. PROMETHAZINE [Concomitant]
     Indication: NAUSEA
  23. BETAMETHASONE [Concomitant]
     Indication: PSORIASIS
     Dosage: LOTION, AS NEEDED
  24. CLINDAMYCIN [Concomitant]
     Indication: ACNE
  25. TRETINOIN [Concomitant]
     Indication: ACNE
  26. NIZORAL [Concomitant]
     Indication: DANDRUFF
  27. TRAMADOL HCL [Concomitant]
     Indication: PAIN
  28. CYPROHEPTADINE [Concomitant]
     Indication: MIGRAINE

REACTIONS (3)
  - Convulsion [Not Recovered/Not Resolved]
  - Nausea [Not Recovered/Not Resolved]
  - Injection site pain [Not Recovered/Not Resolved]
